FAERS Safety Report 11906550 (Version 2)
Quarter: 2016Q1

REPORT INFORMATION
  Report Type: Report from Study
  Country: PA (occurrence: PA)
  Receive Date: 20160111
  Receipt Date: 20160121
  Transmission Date: 20160526
  Serious: Yes (Other)
  Sender: FDA-Public Use
  Company Number: PHHY2015PA166367

PATIENT
  Sex: Female
  Weight: 51.7 kg

DRUGS (2)
  1. SANDOSTATIN [Suspect]
     Active Substance: OCTREOTIDE ACETATE
     Indication: PRODUCT USED FOR UNKNOWN INDICATION
     Dosage: 0.5 MG/ML, UNK (FOR 10 DAYS)
     Route: 058
  2. SANDOSTATIN LAR DEPOT [Suspect]
     Active Substance: OCTREOTIDE ACETATE
     Indication: METASTASES TO LIVER
     Dosage: 20 MG, QMO (MONTHLY)
     Route: 065
     Dates: start: 2012

REACTIONS (4)
  - Malignant neoplasm progression [Unknown]
  - Liver disorder [Unknown]
  - Diarrhoea [Recovering/Resolving]
  - Food intolerance [Unknown]
